FAERS Safety Report 10095669 (Version 3)
Quarter: 2015Q3

REPORT INFORMATION
  Report Type: Spontaneous
  Country: US (occurrence: US)
  Receive Date: 20140422
  Receipt Date: 20150813
  Transmission Date: 20151125
  Serious: No
  Sender: FDA-Public Use
  Company Number: US-GILEAD-2012-0063765

PATIENT
  Age: 28 Year
  Sex: Female

DRUGS (7)
  1. LETAIRIS [Suspect]
     Active Substance: AMBRISENTAN
     Indication: SYSTEMIC LUPUS ERYTHEMATOSUS
  2. AZATHIOPRINE. [Concomitant]
     Active Substance: AZATHIOPRINE
  3. LETAIRIS [Suspect]
     Active Substance: AMBRISENTAN
     Indication: PULMONARY HYPERTENSION
     Dosage: 5 MG, UNK
     Route: 048
     Dates: start: 20120917, end: 20121005
  4. VIAGRA [Concomitant]
     Active Substance: SILDENAFIL CITRATE
  5. PREDNISONE. [Concomitant]
     Active Substance: PREDNISONE
  6. TRAMADOL. [Concomitant]
     Active Substance: TRAMADOL
  7. FUROSEMIDE. [Concomitant]
     Active Substance: FUROSEMIDE

REACTIONS (3)
  - Asthenia [Unknown]
  - Hepatic enzyme increased [Recovered/Resolved]
  - Fatigue [Unknown]

NARRATIVE: CASE EVENT DATE: 20121005
